FAERS Safety Report 12831918 (Version 1)
Quarter: 2016Q4

REPORT INFORMATION
  Report Type: Spontaneous
  Country: FR (occurrence: FR)
  Receive Date: 20161010
  Receipt Date: 20161010
  Transmission Date: 20170207
  Serious: Yes (Other)
  Sender: FDA-Public Use
  Company Number: FR-ACCORD-044680

PATIENT
  Age: 70 Year
  Sex: Male

DRUGS (8)
  1. GEMCITABINE [Suspect]
     Active Substance: GEMCITABINE\GEMCITABINE HYDROCHLORIDE
     Indication: TRANSITIONAL CELL CARCINOMA
     Dosage: 2 G /152.6 ML EQUIVALENT TO 1688.75 MG. COURSE 3 ON 18-AUG-2016 (DOSE REDUCED TO 85%).?1250 MG/M2
     Route: 042
     Dates: start: 20160705
  2. OROKEN 200 [Concomitant]
     Indication: PYELONEPHRITIS ACUTE
     Dosage: 1 TABLET IN THE MORNING AND IN THE EVENING
     Dates: end: 20160723
  3. LERCAN [Concomitant]
     Active Substance: LERCANIDIPINE
     Indication: PRODUCT USED FOR UNKNOWN INDICATION
  4. APROVEL [Concomitant]
     Active Substance: IRBESARTAN
     Indication: PRODUCT USED FOR UNKNOWN INDICATION
     Route: 048
  5. DOLIPRANE [Concomitant]
     Active Substance: ACETAMINOPHEN
     Indication: PRODUCT USED FOR UNKNOWN INDICATION
  6. REPAGLINIDE. [Suspect]
     Active Substance: REPAGLINIDE
     Indication: TYPE 2 DIABETES MELLITUS
     Dosage: LONG TERM TREATMENT
     Route: 048
  7. CIFLOX [Concomitant]
     Active Substance: CIPROFLOXACIN
     Indication: PYELONEPHRITIS ACUTE
  8. CISPLATIN ACCORD [Suspect]
     Active Substance: CISPLATIN
     Indication: TRANSITIONAL CELL CARCINOMA
     Dosage: STRENGTH: 1 MG/ML.?COURSE 1 ON 05-JUL-2016, COURSE 2 ON 28-JUL-2016 (70 MG/M2). DOSE REDUCED TO 70
     Route: 042
     Dates: start: 20160705

REACTIONS (1)
  - Hyperkalaemia [Recovering/Resolving]

NARRATIVE: CASE EVENT DATE: 20160725
